FAERS Safety Report 12900911 (Version 1)
Quarter: 2016Q4

REPORT INFORMATION
  Report Type: Spontaneous
  Country: DK (occurrence: DK)
  Receive Date: 20161101
  Receipt Date: 20161101
  Transmission Date: 20170207
  Serious: Yes (Hospitalization)
  Sender: FDA-Public Use
  Company Number: DK-ENDO PHARMACEUTICALS INC.-2016-006521

PATIENT
  Age: 39 Year
  Sex: Male

DRUGS (4)
  1. FORTESTA [Suspect]
     Active Substance: TESTOSTERONE
     Indication: HORMONE REPLACEMENT THERAPY
     Dosage: 20 MG/G
     Route: 003
     Dates: start: 201606
  2. VENLAFAXINE KRKA [Concomitant]
     Indication: DEPRESSION
     Route: 065
  3. PAROXETIN ORION [Concomitant]
     Indication: DEPRESSION
     Route: 065
  4. DIAZEPAM DAK [Concomitant]
     Indication: SEDATION
     Route: 065

REACTIONS (5)
  - Insomnia [Not Recovered/Not Resolved]
  - Anxiety [Not Recovered/Not Resolved]
  - Depression [Not Recovered/Not Resolved]
  - Restlessness [Not Recovered/Not Resolved]
  - Hyperhidrosis [Not Recovered/Not Resolved]

NARRATIVE: CASE EVENT DATE: 201608
